FAERS Safety Report 5323150-4 (Version None)
Quarter: 2007Q2

REPORT INFORMATION
  Report Type: 
  Country: None (occurrence: None)
  Receive Date: 20070220
  Receipt Date: 20061120
  Transmission Date: 20071010
  Serious: No
  Sender: FDA-Public Use
  Company Number: WAES 0611USA05905

PATIENT
  Age: 71 Year
  Sex: Male

DRUGS (8)
  1. JANUVIA [Suspect]
     Indication: DIABETES MELLITUS
     Dosage: 100 MG/DAILY/PO
     Route: 048
     Dates: start: 20061118
  2. DIOVAN [Concomitant]
  3. HUMALOG [Concomitant]
  4. HUMULIN R [Concomitant]
  5. MINOXIDIL 2% [Concomitant]
  6. VYTORIN [Concomitant]
  7. ATENOLOL [Concomitant]
  8. TRIAMTERENE [Concomitant]

REACTIONS (1)
  - WEIGHT DECREASED [None]
